FAERS Safety Report 19728167 (Version 1)
Quarter: 2021Q3

REPORT INFORMATION
  Report Type: Spontaneous
  Country: DE (occurrence: DE)
  Receive Date: 20210820
  Receipt Date: 20210820
  Transmission Date: 20211014
  Serious: Yes (Hospitalization, Other)
  Sender: FDA-Public Use
  Company Number: DE-TEVA-2021-DE-1942487

PATIENT
  Age: 61 Year
  Sex: Male

DRUGS (6)
  1. TAMSULOSIN [Concomitant]
     Active Substance: TAMSULOSIN
     Dosage: .4 MILLIGRAM DAILY; 1?0?0?0
     Route: 048
  2. METOPROLOL. [Concomitant]
     Active Substance: METOPROLOL
     Dosage: 47.5 MILLIGRAM DAILY; 1?0?1?0
     Route: 048
  3. ZOLPIDEM [Suspect]
     Active Substance: ZOLPIDEM TARTRATE
     Dosage: 10 MILLIGRAM DAILY; 0?0?0?1
     Route: 048
  4. SPIRIVA RESPIMAT 2,5MIKROGRAMM [Concomitant]
     Dosage: 2 DOSAGE FORMS DAILY; 2.5 UG, 2?0?0?0, METERED DOSE INHALER
     Route: 055
  5. E KEPPRA 500MG [Concomitant]
     Dosage: 1000 MILLIGRAM DAILY;  1?0?1?0
     Route: 048
  6. RAMIPRIL. [Concomitant]
     Active Substance: RAMIPRIL
     Dosage: 5 MILLIGRAM DAILY; 1?0?0?0
     Route: 048

REACTIONS (4)
  - Product prescribing error [Unknown]
  - Syncope [Unknown]
  - General physical health deterioration [Unknown]
  - Dehydration [Unknown]
